FAERS Safety Report 24030544 (Version 4)
Quarter: 2024Q4

REPORT INFORMATION
  Report Type: Spontaneous
  Country: CA (occurrence: CA)
  Receive Date: 20240628
  Receipt Date: 20241209
  Transmission Date: 20250114
  Serious: Yes (Hospitalization, Other)
  Sender: PFIZER
  Company Number: CA-PFIZER INC-202400193207

PATIENT
  Age: 39 Year
  Sex: Female

DRUGS (2)
  1. ABRILADA [Suspect]
     Active Substance: ADALIMUMAB-AFZB
     Indication: Hidradenitis
     Dosage: 1 DF, WK0: 160 MG, WK2: 80MG, THEN 40MG EVERY WK STARTING WK4
     Route: 058
     Dates: start: 20240606
  2. ABRILADA [Suspect]
     Active Substance: ADALIMUMAB-AFZB
     Dosage: 1 DF, WK0: 160 MG, WK2: 80MG, THEN 40MG EVERY WK STARTING WK4
     Route: 058
     Dates: start: 202406, end: 202406

REACTIONS (13)
  - Adverse drug reaction [Unknown]
  - Haematochezia [Recovered/Resolved]
  - Abdominal pain [Recovered/Resolved]
  - Skin burning sensation [Unknown]
  - Gingival bleeding [Unknown]
  - Hyperhidrosis [Unknown]
  - Pyrexia [Unknown]
  - Chills [Unknown]
  - Paraesthesia [Unknown]
  - Hypoaesthesia [Unknown]
  - Contusion [Unknown]
  - Rash papular [Unknown]
  - Sensitive skin [Not Recovered/Not Resolved]

NARRATIVE: CASE EVENT DATE: 20240601
